FAERS Safety Report 14398726 (Version 2)
Quarter: 2018Q4

REPORT INFORMATION
  Report Type: Spontaneous
  Country: US (occurrence: US)
  Receive Date: 20180117
  Receipt Date: 20181128
  Transmission Date: 20190204
  Serious: Yes (Hospitalization, Other)
  Sender: FDA-Public Use
  Company Number: US-CIPLA LTD.-2018US01045

PATIENT

DRUGS (7)
  1. PALONOSETRON. [Suspect]
     Active Substance: PALONOSETRON HYDROCHLORIDE
     Indication: PREMEDICATION
     Dosage: UNK
     Route: 065
     Dates: start: 20160329, end: 20160412
  2. DEXAMETHASONE. [Concomitant]
     Active Substance: DEXAMETHASONE
     Indication: PREMEDICATION
     Dosage: UNK
     Route: 065
     Dates: start: 20160329
  3. FLUOROURACIL. [Suspect]
     Active Substance: FLUOROURACIL
     Indication: RECTAL CANCER METASTATIC
     Dosage: UNK, CYCLICAL, 19 CYCLES AND ADDITIONAL 15 CYCLES
     Route: 065
  4. LEUCOVORINE [Suspect]
     Active Substance: LEUCOVORIN
     Indication: RECTAL CANCER METASTATIC
     Dosage: UNK, 20 CYCLES
     Dates: end: 20160412
  5. OXALIPLATIN. [Suspect]
     Active Substance: OXALIPLATIN
     Indication: RECTAL CANCER METASTATIC
     Dosage: UNK, FOR 19 CYCLES
     Dates: end: 20160329
  6. BEVACIZUMAB. [Suspect]
     Active Substance: BEVACIZUMAB
     Indication: RECTAL CANCER METASTATIC
     Dosage: UNK, CYCLICAL, 19 CYCLES AND ADDITIONAL 15 CYCLES
     Route: 065
  7. CAPECITABINE. [Suspect]
     Active Substance: CAPECITABINE
     Indication: RECTAL CANCER METASTATIC
     Dosage: UNK
     Route: 065

REACTIONS (8)
  - Microangiopathic haemolytic anaemia [Recovering/Resolving]
  - Thrombocytopenia [Recovered/Resolved]
  - Immune reconstitution inflammatory syndrome [Unknown]
  - Acute kidney injury [Recovered/Resolved]
  - Hypertension [Unknown]
  - Metastases to liver [Unknown]
  - Neutropenia [Recovered/Resolved]
  - Thrombotic microangiopathy [Unknown]
